FAERS Safety Report 8224580-3 (Version None)
Quarter: 2012Q1

REPORT INFORMATION
  Report Type: 
  Country: None (occurrence: None)
  Receive Date: 20120321
  Receipt Date: 20120309
  Transmission Date: 20120608
  Serious: Yes (Other)
  Sender: FDA-Public Use
  Company Number: US-ELI_LILLY_AND_COMPANY-US201203003644

PATIENT
  Age: 58 Year
  Sex: Female

DRUGS (7)
  1. CYMBALTA [Suspect]
     Dosage: UNK, UNKNOWN
  2. LUNESTA [Concomitant]
     Dosage: UNK, UNKNOWN
  3. CYMBALTA [Suspect]
     Dosage: 30 MG, QD
  4. CYMBALTA [Suspect]
     Dosage: 60 MG, QD
  5. CRESTOR [Concomitant]
     Dosage: UNK, UNKNOWN
  6. CYMBALTA [Suspect]
     Indication: FIBROMYALGIA
     Dosage: 20 MG, QD
  7. THYROID TAB [Concomitant]
     Dosage: UNK, UNKNOWN

REACTIONS (3)
  - DIZZINESS [None]
  - HAEMOCHROMATOSIS [None]
  - GAIT DISTURBANCE [None]
